FAERS Safety Report 11716817 (Version 1)
Quarter: 2015Q4

REPORT INFORMATION
  Report Type: Report from Study
  Country: US (occurrence: US)
  Receive Date: 20151109
  Receipt Date: 20151109
  Transmission Date: 20160304
  Serious: Yes (Other)
  Sender: FDA-Public Use
  Company Number: US-JNJFOC-20150923504

PATIENT
  Age: 80 Year
  Sex: Male

DRUGS (10)
  1. ZYLOPRIM [Concomitant]
     Active Substance: ALLOPURINOL
     Dosage: QD AND PRN
     Route: 048
     Dates: start: 20140903
  2. METFORMIN HYDROCHLORIDE. [Concomitant]
     Active Substance: METFORMIN HYDROCHLORIDE
     Dosage: 1 TAB, BID
     Route: 048
  3. BACTRIM [Concomitant]
     Active Substance: SULFAMETHOXAZOLE\TRIMETHOPRIM
     Dosage: 400-80 MG QD
     Route: 048
     Dates: start: 20140625
  4. CEPHALEXINE [Concomitant]
     Active Substance: CEPHALEXIN
     Route: 048
     Dates: start: 20140919
  5. IMBRUVICA [Suspect]
     Active Substance: IBRUTINIB
     Indication: CHRONIC LEUKAEMIA
     Route: 048
     Dates: start: 20140903
  6. ONDANSETRON [Concomitant]
     Active Substance: ONDANSETRON
     Route: 048
  7. SENOKOT-S [Concomitant]
     Active Substance: DOCUSATE SODIUM\SENNOSIDES
     Route: 048
  8. ACYCLOVIR. [Concomitant]
     Active Substance: ACYCLOVIR
  9. OMEPRAZOLE. [Concomitant]
     Active Substance: OMEPRAZOLE
     Route: 048
  10. HYDROCODONE BITARTRATE AND ACETAMINOPHEN [Concomitant]
     Active Substance: ACETAMINOPHEN\HYDROCODONE BITARTRATE
     Dosage: 5-325 MG, Q 4 HRS AS NEEDED

REACTIONS (10)
  - Skin ulcer [Unknown]
  - Urinary tract disorder [Unknown]
  - Oedema [Unknown]
  - Back pain [Unknown]
  - Off label use [Unknown]
  - Tremor [Unknown]
  - Disorientation [Unknown]
  - Cardiac murmur [Unknown]
  - Haemoglobin decreased [Unknown]
  - Contusion [Unknown]

NARRATIVE: CASE EVENT DATE: 20140917
